FAERS Safety Report 4763365-7 (Version None)
Quarter: 2005Q3

REPORT INFORMATION
  Report Type: 
  Country: None (occurrence: None)
  Receive Date: 20050826
  Receipt Date: 20041213
  Transmission Date: 20060218
  Serious: Yes (Death)
  Sender: FDA-Public Use
  Company Number: USA-2004-0015811

PATIENT
  Age: 60 Year
  Sex: Female

DRUGS (9)
  1. OXYCONTIN [Suspect]
     Indication: PAIN
     Route: 048
  2. LIBRIUM [Suspect]
     Route: 048
  3. OXYMORPHONE HYDROCHLORIDE [Suspect]
     Route: 048
  4. RESTORIL [Suspect]
  5. CITALOPRAM (CITALOPRAM) [Suspect]
  6. CELEXA [Concomitant]
  7. NEURONTIN [Concomitant]
  8. CELEBREX [Concomitant]
  9. PROTONIX [Concomitant]

REACTIONS (3)
  - ACCIDENTAL OVERDOSE [None]
  - ARRHYTHMIA [None]
  - MULTIPLE DRUG OVERDOSE [None]
